FAERS Safety Report 7151573-X (Version None)
Quarter: 2010Q4

REPORT INFORMATION
  Report Type: 
  Country: None (occurrence: None)
  Receive Date: 20101210
  Receipt Date: 20101207
  Transmission Date: 20110411
  Serious: Yes (Hospitalization, Other)
  Sender: FDA-Public Use
  Company Number: CN-PFIZER INC-2010165385

PATIENT
  Age: 18 Year
  Sex: Female

DRUGS (8)
  1. VORICONAZOLE [Suspect]
     Indication: FUNGAL INFECTION
     Dosage: 200 MG, Q12H
     Route: 048
     Dates: start: 20100601, end: 20100701
  2. VORICONAZOLE [Suspect]
     Dosage: 200 MG, Q12H
     Route: 048
     Dates: start: 20100701
  3. CYCLOSPORINE [Suspect]
     Dosage: 100 MG, Q12H
     Route: 048
     Dates: start: 20100401, end: 20100701
  4. CYCLOSPORINE [Suspect]
     Dosage: 75 MG, Q12H
     Route: 048
     Dates: start: 20100701
  5. METHYLPREDNISOLONE [Concomitant]
     Dosage: 8 MG, Q12H
     Route: 048
     Dates: start: 20100401
  6. CEFACLOR [Concomitant]
     Dosage: UNK
     Dates: start: 20100601, end: 20100601
  7. CITICOLINE [Concomitant]
     Dosage: 0.75 G, UNK
     Route: 041
     Dates: start: 20100704
  8. MYCOPHENOLATE MOFETIL [Concomitant]
     Dosage: 1 G, Q12H
     Route: 048
     Dates: start: 20100401

REACTIONS (5)
  - DIZZINESS [None]
  - DRUG INTERACTION [None]
  - EPILEPSY [None]
  - HEADACHE [None]
  - VISION BLURRED [None]
